FAERS Safety Report 25552895 (Version 3)
Quarter: 2025Q3

REPORT INFORMATION
  Report Type: Spontaneous
  Country: US (occurrence: US)
  Receive Date: 20250715
  Receipt Date: 20250806
  Transmission Date: 20251020
  Serious: No
  Sender: BLUEPRINT MEDICINES
  Company Number: US-Blueprint Medicines Corporation-2025-AER-01494

PATIENT
  Age: 57 Year
  Sex: Female

DRUGS (3)
  1. AYVAKIT [Suspect]
     Active Substance: AVAPRITINIB
     Indication: Systemic mastocytosis
     Route: 065
  2. AYVAKIT [Suspect]
     Active Substance: AVAPRITINIB
     Indication: Mastocytoma
     Route: 065
  3. AYVAKIT [Suspect]
     Active Substance: AVAPRITINIB
     Route: 065

REACTIONS (15)
  - Weight decreased [Unknown]
  - General physical health deterioration [Unknown]
  - Pain [Unknown]
  - Swelling [Unknown]
  - Bone pain [Unknown]
  - Arthralgia [Unknown]
  - Asthenia [Unknown]
  - Malaise [Unknown]
  - Pulmonary mass [Unknown]
  - Dysphonia [Unknown]
  - Oropharyngeal discomfort [Unknown]
  - Gastrooesophageal reflux disease [Unknown]
  - Blood triglycerides increased [Unknown]
  - Tryptase increased [Unknown]
  - Off label use [Unknown]

NARRATIVE: CASE EVENT DATE: 20250101
